APPROVED DRUG PRODUCT: FLONASE
Active Ingredient: FLUTICASONE PROPIONATE
Strength: 0.05MG/SPRAY **Federal Register determination that product was not discontinued or withdrawn for safety or effectiveness reasons**
Dosage Form/Route: SPRAY, METERED;NASAL
Application: N020121 | Product #001
Applicant: HALEON US HOLDINGS LLC
Approved: Oct 19, 1994 | RLD: Yes | RS: No | Type: DISCN